FAERS Safety Report 5304641-9 (Version None)
Quarter: 2007Q2

REPORT INFORMATION
  Report Type: 
  Country: None (occurrence: None)
  Receive Date: 20070416
  Receipt Date: 20070330
  Transmission Date: 20071010
  Serious: Yes (Hospitalization)
  Sender: FDA-Public Use
  Company Number: MEDI-0005663

PATIENT
  Age: 9 Month
  Sex: Male

DRUGS (2)
  1. SYNAGIS [Suspect]
     Indication: ANTIVIRAL PROPHYLAXIS
     Dosage: INTRAMUSCULAR
     Route: 030
     Dates: start: 20070327
  2. VITAMIN D [Concomitant]

REACTIONS (1)
  - CONVULSION [None]
